FAERS Safety Report 18578965 (Version 1)
Quarter: 2020Q4

REPORT INFORMATION
  Report Type: Spontaneous
  Country: US (occurrence: US)
  Receive Date: 20201203
  Receipt Date: 20201203
  Transmission Date: 20210114
  Serious: Yes (Disabling, Other)
  Sender: FDA-Public Use
  Company Number: None

PATIENT
  Age: 64 Year
  Sex: Female

DRUGS (1)
  1. NP THYROID [Suspect]
     Active Substance: LEVOTHYROXINE\LIOTHYRONINE
     Indication: HYPOTHYROIDISM
     Dosage: ?          QUANTITY:1 TABLET(S);?
     Route: 048
     Dates: start: 20191101, end: 20201113

REACTIONS (29)
  - Muscular weakness [None]
  - Irritability [None]
  - Alanine aminotransferase increased [None]
  - Peripheral swelling [None]
  - Product substitution issue [None]
  - Vitreous floaters [None]
  - Pain in extremity [None]
  - Ocular discomfort [None]
  - Eye pain [None]
  - Musculoskeletal stiffness [None]
  - Temperature intolerance [None]
  - Night sweats [None]
  - Nervousness [None]
  - Abdominal pain [None]
  - Photophobia [None]
  - Vision blurred [None]
  - Fluid retention [None]
  - Poverty of speech [None]
  - Vitreous detachment [None]
  - Chills [None]
  - Dry eye [None]
  - Cognitive disorder [None]
  - Asthenia [None]
  - Constipation [None]
  - Weight increased [None]
  - Palpitations [None]
  - Fatigue [None]
  - Anxiety [None]
  - Swelling face [None]

NARRATIVE: CASE EVENT DATE: 20201020
